FAERS Safety Report 20401033 (Version 2)
Quarter: 2022Q1

REPORT INFORMATION
  Report Type: Spontaneous
  Country: US (occurrence: US)
  Receive Date: 20220131
  Receipt Date: 20220201
  Transmission Date: 20220423
  Serious: No
  Sender: FDA-Public Use
  Company Number: US-ABBVIE-21K-163-4078090-00

PATIENT
  Age: 88 Year
  Sex: Female
  Weight: 50.394 kg

DRUGS (6)
  1. HUMIRA [Suspect]
     Active Substance: ADALIMUMAB
     Indication: Rheumatoid arthritis
     Dosage: LOADING DOSE
     Route: 058
     Dates: start: 20210902, end: 20210902
  2. HUMIRA [Suspect]
     Active Substance: ADALIMUMAB
     Route: 058
     Dates: start: 2021
  3. PREDNISONE [Concomitant]
     Active Substance: PREDNISONE
     Indication: Rheumatoid arthritis
  4. TYLENOL [Concomitant]
     Active Substance: ACETAMINOPHEN
     Indication: Pain
  5. PFIZER-BIONTECH COVID-19 VACCINE [Concomitant]
     Active Substance: TOZINAMERAN
     Indication: COVID-19 immunisation
     Route: 030
     Dates: start: 202102, end: 202102
  6. PFIZER-BIONTECH COVID-19 VACCINE [Concomitant]
     Active Substance: TOZINAMERAN
     Route: 030
     Dates: start: 202102, end: 202102

REACTIONS (4)
  - Tremor [Recovering/Resolving]
  - Nervousness [Recovering/Resolving]
  - Device issue [Recovered/Resolved]
  - Injection site bruising [Unknown]

NARRATIVE: CASE EVENT DATE: 20210902
